FAERS Safety Report 8506235-0 (Version None)
Quarter: 2012Q3

REPORT INFORMATION
  Report Type: 
  Country: None (occurrence: None)
  Receive Date: 20120712
  Receipt Date: 20120627
  Transmission Date: 20120928
  Serious: Yes (Congenital Anomaly, Other)
  Sender: FDA-Public Use
  Company Number: IL-WATSON-2012-11807

PATIENT

DRUGS (2)
  1. DOXYCYCLINE [Suspect]
     Indication: PRODUCT USED FOR UNKNOWN INDICATION
     Dosage: UNK
     Route: 064
  2. ROXITHROMYCIN (UNKNOWN) [Suspect]
     Indication: BRONCHITIS
     Dosage: UNK
     Route: 064

REACTIONS (2)
  - POLYDACTYLY [None]
  - FOETAL EXPOSURE DURING PREGNANCY [None]
